FAERS Safety Report 6056523-5 (Version None)
Quarter: 2009Q1

REPORT INFORMATION
  Report Type: 
  Country: None (occurrence: None)
  Receive Date: 20090129
  Receipt Date: 20080829
  Transmission Date: 20090719
  Serious: No
  Sender: FDA-Public Use
  Company Number: A0745212A

PATIENT
  Age: 37 Year
  Sex: Male

DRUGS (4)
  1. COMBIVIR [Suspect]
     Dosage: 1TAB TWICE PER DAY
     Route: 048
     Dates: start: 20080823
  2. KALETRA [Concomitant]
  3. LIPITOR [Concomitant]
  4. DIOVAN [Concomitant]

REACTIONS (3)
  - FATIGUE [None]
  - FEELING HOT [None]
  - MYALGIA [None]
